FAERS Safety Report 9015295 (Version 1)
Quarter: 2013Q1

REPORT INFORMATION
  Report Type: Spontaneous
  Country: US (occurrence: US)
  Receive Date: 20130116
  Receipt Date: 20130116
  Transmission Date: 20140127
  Serious: Yes (Other)
  Sender: FDA-Public Use
  Company Number: US-009507513-1012USA00711

PATIENT
  Age: 10 Year
  Sex: Male
  Weight: 33.57 kg

DRUGS (1)
  1. SINGULAIR [Suspect]
     Indication: MULTIPLE ALLERGIES
     Dosage: 5 MG, QD
     Route: 048
     Dates: start: 20090915, end: 20100208

REACTIONS (5)
  - Abnormal behaviour [Unknown]
  - Depression [Unknown]
  - Educational problem [Unknown]
  - Negative thoughts [Unknown]
  - Suicidal ideation [Unknown]
